FAERS Safety Report 18576869 (Version 1)
Quarter: 2020Q4

REPORT INFORMATION
  Report Type: Spontaneous
  Country: BR (occurrence: BR)
  Receive Date: 20201204
  Receipt Date: 20201204
  Transmission Date: 20210114
  Serious: Yes (Other)
  Sender: FDA-Public Use
  Company Number: BR-AMGEN-BRASP2020193924

PATIENT
  Age: 61 Year
  Sex: Female
  Weight: 60 kg

DRUGS (1)
  1. PROLIA [Suspect]
     Active Substance: DENOSUMAB
     Indication: OSTEOPOROSIS
     Dosage: UNK UNK, Q6MO
     Route: 058
     Dates: start: 2018

REACTIONS (3)
  - Dysarthria [Not Recovered/Not Resolved]
  - Hemiparesis [Not Recovered/Not Resolved]
  - Tremor [Not Recovered/Not Resolved]
